FAERS Safety Report 12363806 (Version 1)
Quarter: 2016Q2

REPORT INFORMATION
  Report Type: Spontaneous
  Country: US (occurrence: None)
  Receive Date: 20160512
  Receipt Date: 20160512
  Transmission Date: 20160815
  Serious: Yes (Other)
  Sender: FDA-Public Use
  Company Number: None

PATIENT
  Age: 65 Year
  Sex: Male
  Weight: 82.56 kg

DRUGS (2)
  1. DEXTROMETHORPHAN TABLETS GENERIC/MULTIPLE [Suspect]
     Active Substance: DEXTROMETHORPHAN
     Indication: PAIN
     Route: 048
     Dates: start: 20160101, end: 20160505
  2. DEXTROMETHORPHAN TABLETS GENERIC/MULTIPLE [Suspect]
     Active Substance: DEXTROMETHORPHAN
     Indication: EUPHORIC MOOD
     Route: 048
     Dates: start: 20160101, end: 20160505

REACTIONS (7)
  - Ataxia [None]
  - Respiratory rate decreased [None]
  - Incorrect dose administered [None]
  - Disorientation [None]
  - Hypertension [None]
  - Mental status changes [None]
  - Somnolence [None]

NARRATIVE: CASE EVENT DATE: 20160505
